FAERS Safety Report 4906378-4 (Version None)
Quarter: 2006Q1

REPORT INFORMATION
  Report Type: 
  Country: None (occurrence: None)
  Receive Date: 20060209
  Receipt Date: 20060203
  Transmission Date: 20060701
  Serious: Yes (Disabling)
  Sender: FDA-Public Use
  Company Number: GB-JNJFOC-20050401364

PATIENT
  Age: 77 Year
  Sex: Male

DRUGS (3)
  1. TRAMADOL HCL [Suspect]
     Indication: PAIN
     Dosage: 1 - 2 CAPSULES DAILY
     Route: 048
  2. LANSOPRAZOLE [Concomitant]
     Indication: GASTROINTESTINAL DISORDER
     Route: 048
  3. VENTOLIN [Concomitant]
     Indication: ASTHMA
     Dosage: 2 PUFFS PRN
     Route: 055

REACTIONS (2)
  - OEDEMA PERIPHERAL [None]
  - URINARY RETENTION [None]
